FAERS Safety Report 10960280 (Version 1)
Quarter: 2015Q1

REPORT INFORMATION
  Report Type: Spontaneous
  Country: US (occurrence: None)
  Receive Date: 20150326
  Receipt Date: 20150326
  Transmission Date: 20150721
  Serious: Yes (Other)
  Sender: FDA-Public Use
  Company Number: None

PATIENT
  Age: 62 Year
  Sex: Male

DRUGS (1)
  1. STELARA [Suspect]
     Active Substance: USTEKINUMAB
     Indication: PSORIASIS
     Dosage: EVERY 9 WEEKS
     Route: 058
     Dates: start: 20120613, end: 20150309

REACTIONS (1)
  - Seizure [None]

NARRATIVE: CASE EVENT DATE: 20150309
